FAERS Safety Report 5999973-5 (Version None)
Quarter: 2008Q4

REPORT INFORMATION
  Report Type: 
  Country: None (occurrence: None)
  Receive Date: 20081211
  Receipt Date: 20081126
  Transmission Date: 20090506
  Serious: Yes (Other)
  Sender: FDA-Public Use
  Company Number: 1000003027

PATIENT
  Age: 85 Year
  Sex: Female

DRUGS (5)
  1. ESCITALOPRAM [Suspect]
     Indication: DEPRESSION
     Dosage: 10 MG (10 MG), ORAL
     Route: 048
  2. FOLIC ACID [Concomitant]
  3. SALBUTAMOL (AMPOULES) [Concomitant]
  4. SERETIDE [Concomitant]
  5. CALCICHEW D3 [Concomitant]

REACTIONS (1)
  - PETIT MAL EPILEPSY [None]
